FAERS Safety Report 17344739 (Version 1)
Quarter: 2020Q1

REPORT INFORMATION
  Report Type: Spontaneous
  Country: MX (occurrence: MX)
  Receive Date: 20200129
  Receipt Date: 20200129
  Transmission Date: 20200409
  Serious: Yes (Other)
  Sender: FDA-Public Use
  Company Number: MX-SHIRE-MX202002836

PATIENT

DRUGS (2)
  1. VYVANSE [Suspect]
     Active Substance: LISDEXAMFETAMINE DIMESYLATE
     Indication: PRODUCT USED FOR UNKNOWN INDICATION
     Dosage: 30 MILLIGRAM
     Route: 065
  2. MODAFINIL. [Suspect]
     Active Substance: MODAFINIL
     Indication: PRODUCT USED FOR UNKNOWN INDICATION

REACTIONS (11)
  - Nausea [Unknown]
  - Musculoskeletal pain [Unknown]
  - Unevaluable event [Unknown]
  - Product availability issue [Unknown]
  - Dyschromatopsia [Unknown]
  - Nervousness [Unknown]
  - Rectal haemorrhage [Unknown]
  - Stress [Unknown]
  - Tremor [Unknown]
  - Dyspnoea [Unknown]
  - Hyperreflexia [Unknown]
